FAERS Safety Report 15206436 (Version 8)
Quarter: 2019Q1

REPORT INFORMATION
  Report Type: Report from Study
  Country: DE (occurrence: DE)
  Receive Date: 20180727
  Receipt Date: 20190130
  Transmission Date: 20190417
  Serious: Yes (Death, Life-Threatening, Hospitalization, Other)
  Sender: FDA-Public Use
  Company Number: DE-009507513-0910DEU00050

PATIENT
  Age: 68 Year
  Sex: Female
  Weight: 53 kg

DRUGS (34)
  1. VALPROIC ACID. [Suspect]
     Active Substance: VALPROIC ACID
     Indication: PRODUCT USED FOR UNKNOWN INDICATION
     Dosage: 300 MG, QD
     Route: 065
  2. VALPROIC ACID. [Suspect]
     Active Substance: VALPROIC ACID
     Dosage: 600 MG, QD
     Route: 065
  3. VALPROIC ACID. [Suspect]
     Active Substance: VALPROIC ACID
     Dosage: 300 MILLIGRAM, BID
     Route: 065
  4. DISTRANEURIN [Suspect]
     Active Substance: CLOMETHIAZOLE
     Indication: PRODUCT USED FOR UNKNOWN INDICATION
     Dosage: UNK, UNK, PRN
     Route: 048
     Dates: start: 2009
  5. TRAMAL [Concomitant]
     Active Substance: TRAMADOL
     Dosage: UNK, UNK, UNK
     Route: 042
  6. OMEPRAZOLE. [Suspect]
     Active Substance: OMEPRAZOLE
     Indication: PREMEDICATION
     Dosage: 80 MILLIGRAM, QD (ALSO REPORTED AS 40 MG, BID)
     Route: 065
  7. RIVASTIGMINE. [Suspect]
     Active Substance: RIVASTIGMINE
     Indication: PARKINSON^S DISEASE
     Dosage: 3 MG, BID
     Route: 065
  8. MOVICOL [Concomitant]
     Active Substance: POLYETHYLENE GLYCOL 3350\POTASSIUM CHLORIDE\SODIUM BICARBONATE\SODIUM CHLORIDE
     Indication: PRODUCT USED FOR UNKNOWN INDICATION
     Dosage: 1 DF, QD
     Route: 065
  9. ERGENYL [Concomitant]
     Active Substance: VALPROIC ACID
     Dosage: 600 MG, QD
     Route: 065
  10. RIVASTIGMINE. [Suspect]
     Active Substance: RIVASTIGMINE
     Dosage: 6 MG, QD
     Route: 048
  11. NACOM [Concomitant]
     Active Substance: CARBIDOPA\LEVODOPA
     Indication: PRODUCT USED FOR UNKNOWN INDICATION
     Dosage: 250 MG, QD
     Route: 065
  12. CARBIDOPA (+) LEVODOPA [Suspect]
     Active Substance: CARBIDOPA\LEVODOPA
     Indication: PRODUCT USED FOR UNKNOWN INDICATION
     Dosage: 200 MG, QD
     Route: 048
  13. STALEVO [Suspect]
     Active Substance: CARBIDOPA\ENTACAPONE\LEVODOPA
     Dosage: 6 DF, QD
     Route: 048
  14. NOVAMINSULFON [Concomitant]
     Active Substance: METAMIZOLE
     Indication: PRODUCT USED FOR UNKNOWN INDICATION
     Dosage: 20 DROP, QID
     Route: 065
  15. CLOZAPINE. [Suspect]
     Active Substance: CLOZAPINE
     Dosage: 25 MG, UNK
     Route: 048
  16. STALEVO [Suspect]
     Active Substance: CARBIDOPA\ENTACAPONE\LEVODOPA
     Indication: PRODUCT USED FOR UNKNOWN INDICATION
     Dosage: 600 MILLIGRAM, QD
     Route: 048
  17. DOMPERIDONE [Suspect]
     Active Substance: DOMPERIDONE
     Dosage: 20 MILLIGRAM, QD (ALSO REPORTED AS 10 MG, BID)
     Route: 048
  18. RIVASTIGMINE. [Suspect]
     Active Substance: RIVASTIGMINE
     Dosage: 3-1.5-1.5 MG, QD
     Route: 048
  19. LEVODOPA [Suspect]
     Active Substance: LEVODOPA
     Indication: PREMEDICATION
     Dosage: 93.75 MG, QD
     Route: 048
  20. LACTULOSE. [Concomitant]
     Active Substance: LACTULOSE
     Indication: PRODUCT USED FOR UNKNOWN INDICATION
     Dosage: 20 ML, QD
     Route: 065
  21. METOCLOPRAMIDE. [Concomitant]
     Active Substance: METOCLOPRAMIDE
     Indication: PRODUCT USED FOR UNKNOWN INDICATION
     Dosage: UNK UNK, UNK
     Route: 042
  22. DISTRANEURIN [Suspect]
     Active Substance: CLOMETHIAZOLE
     Indication: PREMEDICATION
     Dosage: UNK, UNK, UNK
     Route: 065
  23. PIPAMPERONE [Suspect]
     Active Substance: PIPAMPERONE
     Indication: PRODUCT USED FOR UNKNOWN INDICATION
     Dosage: 40 MG, QD
     Route: 065
  24. CLOZAPINE. [Suspect]
     Active Substance: CLOZAPINE
     Dosage: 0.5 DF, Q3W (25MG (0.5 TABLET AT 7+9+12+14+19 O^CLOCK)
     Route: 048
  25. STALEVO [Suspect]
     Active Substance: CARBIDOPA\ENTACAPONE\LEVODOPA
     Dosage: 50 MILLIGRAM, TID
     Route: 065
  26. STALEVO [Suspect]
     Active Substance: CARBIDOPA\ENTACAPONE\LEVODOPA
     Dosage: 100 MG, QD
     Route: 048
  27. DOMPERIDONE [Suspect]
     Active Substance: DOMPERIDONE
     Indication: PRODUCT USED FOR UNKNOWN INDICATION
     Dosage: 10 MG, BID
     Route: 048
  28. CLOZAPINE. [Suspect]
     Active Substance: CLOZAPINE
     Indication: PRODUCT USED FOR UNKNOWN INDICATION
     Dosage: 62.5 MG, QD
     Route: 048
  29. CLOZAPINE. [Suspect]
     Active Substance: CLOZAPINE
     Dosage: 225 MG, QD
     Route: 048
     Dates: start: 20090111
  30. OMEPRAZOLE. [Suspect]
     Active Substance: OMEPRAZOLE
     Indication: PRODUCT USED FOR UNKNOWN INDICATION
     Dosage: 40 MG, QD
     Route: 048
  31. KALIUM (POTASSIUM ADIPATE) [Concomitant]
     Active Substance: POTASSIUM ADIPATE
     Indication: PRODUCT USED FOR UNKNOWN INDICATION
     Dosage: UNK, UNK, UNK
     Route: 065
  32. NEOSTIGMINE METHYLSULFATE. [Concomitant]
     Active Substance: NEOSTIGMINE METHYLSULFATE
     Dosage: UNK, UNK, UNK
     Route: 065
  33. EXELON [Suspect]
     Active Substance: RIVASTIGMINE TARTRATE
     Indication: PRODUCT USED FOR UNKNOWN INDICATION
     Dosage: 6 MG, QD (3 MG, BID)
     Route: 065
  34. STALEVO [Suspect]
     Active Substance: CARBIDOPA\ENTACAPONE\LEVODOPA
     Dosage: 250 MG, QD
     Route: 048
     Dates: start: 20090111

REACTIONS (13)
  - Bladder disorder [Unknown]
  - Pancreatitis [Fatal]
  - Faecaloma [Fatal]
  - Abdominal distension [Unknown]
  - Vascular encephalopathy [Unknown]
  - Gastrointestinal sounds abnormal [Unknown]
  - Ileus [Fatal]
  - Subileus [Fatal]
  - Dementia [Unknown]
  - Abdominal tenderness [Unknown]
  - White blood cell count increased [Unknown]
  - Abdominal pain [Unknown]
  - Nausea [Unknown]

NARRATIVE: CASE EVENT DATE: 2009
